FAERS Safety Report 10712131 (Version 1)
Quarter: 2015Q1

REPORT INFORMATION
  Report Type: Spontaneous
  Country: US (occurrence: US)
  Receive Date: 20150114
  Receipt Date: 20150114
  Transmission Date: 20150721
  Serious: Yes (Hospitalization)
  Sender: FDA-Public Use
  Company Number: US-ASTRAZENECA-2015SE02676

PATIENT
  Age: 6 Month
  Sex: Female
  Weight: 5 kg

DRUGS (1)
  1. SYNAGIS [Suspect]
     Active Substance: PALIVIZUMAB
     Indication: PREMATURE BABY
     Dosage: 50 MG/0.5 ML; 15 MG/KG; MONTHLY
     Route: 030
     Dates: start: 20141104

REACTIONS (2)
  - Abdominal hernia [Recovered/Resolved]
  - Upper respiratory tract congestion [Recovered/Resolved]

NARRATIVE: CASE EVENT DATE: 201411
